FAERS Safety Report 8288249-1 (Version None)
Quarter: 2012Q2

REPORT INFORMATION
  Report Type: 
  Country: None (occurrence: None)
  Receive Date: 20120416
  Receipt Date: 20120406
  Transmission Date: 20120825
  Serious: Yes (Disabling, Other)
  Sender: FDA-Public Use
  Company Number: US-ASTRAZENECA-2011SE25471

PATIENT
  Age: 37 Year
  Sex: Female
  Weight: 81.6 kg

DRUGS (22)
  1. NEXIUM [Suspect]
     Indication: GASTROOESOPHAGEAL REFLUX DISEASE
     Route: 048
     Dates: start: 20000101
  2. XANAX [Suspect]
     Indication: POST-TRAUMATIC STRESS DISORDER
     Route: 048
  3. XANAX [Suspect]
     Route: 048
  4. XANAX [Suspect]
     Route: 048
  5. NEXIUM [Suspect]
     Dosage: TWO TIMES A DAY
     Route: 048
  6. CITRUCEL [Concomitant]
  7. ALLEGRA [Concomitant]
  8. MULTIPLE LAXATIVES [Concomitant]
  9. ACCURETIC [Suspect]
     Indication: HYPERTENSION
     Dosage: 20 MG/12.5 MG TWO TIMES A DAY
     Route: 048
  10. NEXIUM [Suspect]
     Indication: HYPERCHLORHYDRIA
     Route: 048
     Dates: start: 20000101
  11. NARDIL [Suspect]
     Indication: SOCIAL PHOBIA
     Dosage: 15 MG 8 TABLETS PER DAY
     Route: 048
  12. FISH OIL OTC [Concomitant]
     Indication: CARDIAC DISORDER
     Dosage: THREE TIMES A DAY
     Route: 048
  13. NEXIUM [Suspect]
     Dosage: TWO TIMES A DAY
     Route: 048
  14. PREPARATION-H [Suspect]
  15. XANAX [Suspect]
     Indication: GENERALISED ANXIETY DISORDER
     Route: 048
  16. NARDIL [Suspect]
     Indication: DEPRESSION
     Dosage: 15 MG 8 TABLETS PER DAY
     Route: 048
  17. MAGNESIUM [Concomitant]
     Route: 048
  18. ESGIC-PLUS [Concomitant]
     Indication: HEADACHE
     Dosage: AS REQUIRED
     Route: 048
  19. VENTOLIN DS [Concomitant]
     Indication: ASTHMA
     Route: 055
  20. ASPIRIN [Concomitant]
  21. VITAMIN D [Concomitant]
     Dosage: 5000 UNITS ONCE A WEEK
     Route: 048
  22. SEROQUEL [Suspect]
     Route: 048

REACTIONS (41)
  - ULCER HAEMORRHAGE [None]
  - HAEMORRHOIDS [None]
  - WEIGHT DECREASED [None]
  - DIZZINESS POSTURAL [None]
  - LETHARGY [None]
  - NAUSEA [None]
  - DRUG INEFFECTIVE [None]
  - CATARACT [None]
  - PANIC ATTACK [None]
  - NERVOUSNESS [None]
  - DECREASED APPETITE [None]
  - ABDOMINAL PAIN [None]
  - OFF LABEL USE [None]
  - RECTAL HAEMORRHAGE [None]
  - ACTIVITIES OF DAILY LIVING IMPAIRED [None]
  - WEIGHT INCREASED [None]
  - TOBACCO USER [None]
  - SOMNOLENCE [None]
  - INTENTIONAL DRUG MISUSE [None]
  - GASTROOESOPHAGEAL REFLUX DISEASE [None]
  - BURNING SENSATION [None]
  - ADVERSE EVENT [None]
  - DYSPEPSIA [None]
  - VOMITING [None]
  - HYPERSENSITIVITY [None]
  - HAEMORRHAGE [None]
  - APHAGIA [None]
  - ANAL SPHINCTER ATONY [None]
  - POST-TRAUMATIC STRESS DISORDER [None]
  - HYPERTENSIVE CRISIS [None]
  - DRUG DEPENDENCE [None]
  - DEPRESSION [None]
  - PAIN [None]
  - EATING DISORDER [None]
  - BLOOD MAGNESIUM DECREASED [None]
  - CONSTIPATION [None]
  - FEELING ABNORMAL [None]
  - BLOOD PRESSURE INCREASED [None]
  - GENERALISED ANXIETY DISORDER [None]
  - SOCIAL AVOIDANT BEHAVIOUR [None]
  - BLOOD POTASSIUM DECREASED [None]
